FAERS Safety Report 21219967 (Version 2)
Quarter: 2022Q3

REPORT INFORMATION
  Report Type: Report from Study
  Country: DE (occurrence: DE)
  Receive Date: 20220817
  Receipt Date: 20220925
  Transmission Date: 20221026
  Serious: Yes (Other)
  Sender: FDA-Public Use
  Company Number: DE-BRISTOL-MYERS SQUIBB COMPANY-2022-086076

PATIENT
  Age: 74 Year
  Sex: Female
  Weight: 70 kg

DRUGS (23)
  1. LENALIDOMIDE [Suspect]
     Active Substance: LENALIDOMIDE
     Indication: Product used for unknown indication
     Route: 065
     Dates: start: 20150917, end: 20150923
  2. LENALIDOMIDE [Suspect]
     Active Substance: LENALIDOMIDE
     Route: 065
     Dates: start: 20151001, end: 20151014
  3. LENALIDOMIDE [Suspect]
     Active Substance: LENALIDOMIDE
     Route: 065
     Dates: start: 20151022, end: 20151125
  4. LENALIDOMIDE [Suspect]
     Active Substance: LENALIDOMIDE
     Route: 065
     Dates: start: 20151129, end: 20170913
  5. DEXAMETHASONE [Suspect]
     Active Substance: DEXAMETHASONE
     Indication: Product used for unknown indication
     Route: 065
     Dates: start: 20150917, end: 201511
  6. DEXAMETHASONE [Suspect]
     Active Substance: DEXAMETHASONE
     Route: 065
     Dates: start: 20151119
  7. VENLAFAXINE HYDROCHLORIDE [Concomitant]
     Active Substance: VENLAFAXINE HYDROCHLORIDE
     Indication: Diarrhoea
     Route: 042
     Dates: start: 20151112, end: 20151112
  8. LERCANIDIPINO [Concomitant]
     Indication: Product used for unknown indication
     Route: 048
  9. JANUVIA [Concomitant]
     Active Substance: SITAGLIPTIN PHOSPHATE
     Indication: Diabetes mellitus
     Route: 048
  10. RASILEZ [Concomitant]
     Active Substance: ALISKIREN
     Indication: Essential hypertension
     Route: 048
  11. HYDROCHLOROTHIAZIDE [Concomitant]
     Active Substance: HYDROCHLOROTHIAZIDE
     Indication: Product used for unknown indication
     Route: 048
  12. BISOPROLOL [Concomitant]
     Active Substance: BISOPROLOL
     Indication: Essential hypertension
     Route: 048
  13. CALCIUM\CHOLECALCIFEROL [Concomitant]
     Active Substance: CALCIUM\CHOLECALCIFEROL
     Indication: Prophylaxis
     Route: 048
     Dates: start: 20151105, end: 20151203
  14. CALCIUM\CHOLECALCIFEROL [Concomitant]
     Active Substance: CALCIUM\CHOLECALCIFEROL
     Indication: Hypocalcaemia
     Dosage: TWICE PER ?DAY
     Route: 048
     Dates: start: 20151203
  15. KALINOR-RETARD P [Concomitant]
     Indication: Diarrhoea
     Route: 048
     Dates: start: 20151112, end: 20151203
  16. KALINOR-RETARD P [Concomitant]
     Indication: Hypocalcaemia
     Dosage: THRICE PER DAY
     Route: 048
     Dates: start: 20151203
  17. CLINDAMYCIN-RATIOPHARM [CLINDAMYCIN HYDROCHLORIDE] [Concomitant]
     Indication: Tooth extraction
     Route: 048
     Dates: start: 20170203, end: 20170208
  18. LOPERAMIDE HYDROCHLORIDE [Concomitant]
     Active Substance: LOPERAMIDE HYDROCHLORIDE
     Indication: Diarrhoea
     Dosage: AS NEEDED
     Route: 048
     Dates: start: 20151112
  19. CEFUROXIM-SAAR [CEFUROXIME SODIUM] [Concomitant]
     Indication: Bronchitis
     Dosage: AS NEEDED
     Route: 048
     Dates: start: 20160914, end: 20160919
  20. ZOMETA [Concomitant]
     Active Substance: ZOLEDRONIC ACID
     Indication: Bone disorder
     Dosage: AS NEEDED
     Route: 042
     Dates: start: 20151119, end: 20161117
  21. ZOMETA [Concomitant]
     Active Substance: ZOLEDRONIC ACID
     Route: 042
     Dates: start: 20170406
  22. ROCEPHIN [Concomitant]
     Active Substance: CEFTRIAXONE SODIUM
     Indication: Bronchitis
     Dosage: AS NEEDED
     Route: 042
     Dates: start: 20160912, end: 20160913
  23. METAMIZOLE [Concomitant]
     Active Substance: METAMIZOLE
     Indication: Back pain
     Dosage: AS NEEDED (QID)
     Route: 048
     Dates: start: 20151015

REACTIONS (1)
  - Colon cancer metastatic [Unknown]

NARRATIVE: CASE EVENT DATE: 20211201
